FAERS Safety Report 8076183-1 (Version None)
Quarter: 2012Q1

REPORT INFORMATION
  Report Type: 
  Country: None (occurrence: None)
  Receive Date: 20120127
  Receipt Date: 20120117
  Transmission Date: 20120608
  Serious: Yes (Congenital Anomaly)
  Sender: FDA-Public Use
  Company Number: JP-SANOFI-AVENTIS-2012SA004854

PATIENT

DRUGS (3)
  1. RISPERDAL [Suspect]
     Route: 064
  2. ZOLPIDEM [Suspect]
     Route: 064
  3. HIRNAMIN [Suspect]
     Route: 064

REACTIONS (2)
  - ATTENTION DEFICIT/HYPERACTIVITY DISORDER [None]
  - AUTISM [None]
